FAERS Safety Report 8810178 (Version 1)
Quarter: 2012Q4

REPORT INFORMATION
  Report Type: 
  Country: FR (occurrence: FR)
  Receive Date: 20120926
  Receipt Date: 20120926
  Transmission Date: 20130627
  Serious: Yes (Hospitalization)
  Sender: FDA-Public Use
  Company Number: PHHY2012FR081797

PATIENT
  Sex: Female

DRUGS (2)
  1. VOLTARENE [Suspect]
     Dates: start: 201203
  2. ASPEGIC [Suspect]
     Dates: start: 201203

REACTIONS (10)
  - Peritonitis [Recovered/Resolved with Sequelae]
  - Gastric ulcer [Recovered/Resolved with Sequelae]
  - Gastrointestinal perforation [Recovered/Resolved with Sequelae]
  - Gastrointestinal inflammation [Unknown]
  - Ascites [Unknown]
  - Candidiasis [Unknown]
  - Hyponatraemia [Recovered/Resolved with Sequelae]
  - Liver function test abnormal [Unknown]
  - Blood creatine phosphokinase increased [Unknown]
  - Scar [Recovered/Resolved]
